FAERS Safety Report 5962812-2 (Version None)
Quarter: 2008Q4

REPORT INFORMATION
  Report Type: 
  Country: None (occurrence: None)
  Receive Date: 20081124
  Receipt Date: 20081121
  Transmission Date: 20090506
  Serious: Yes (Hospitalization)
  Sender: FDA-Public Use
  Company Number: DE-BRISTOL-MYERS SQUIBB COMPANY-14385363

PATIENT
  Age: 45 Year
  Sex: Female
  Weight: 62 kg

DRUGS (3)
  1. PACLITAXEL [Suspect]
     Indication: OVARIAN CANCER
     Dosage: THERAPY STARTED ON 29JAN08. THERAPY DISCONTINUED ON 22-OCT-2008
     Route: 065
     Dates: start: 20080520, end: 20080520
  2. CARBOPLATIN [Suspect]
     Indication: OVARIAN CANCER
     Dosage: THERAPY STARTED ON 29JAN08. THERAPY DISCONTINUED ON 22-OCT-2008
     Route: 065
     Dates: start: 20080520, end: 20080520
  3. BLINDED: PLACEBO [Suspect]
     Indication: OVARIAN CANCER
     Dosage: STARTEDON 28JAN08,TAKEN1125 MG/PLACEBO,500MG/PLACEBOFROM29JAN08-UNK.STUDYDISCONTINUEDON22-OCT-2008.
     Route: 065
     Dates: start: 20081014, end: 20081014

REACTIONS (1)
  - SINUS TACHYCARDIA [None]
